FAERS Safety Report 21854663 (Version 2)
Quarter: 2023Q1

REPORT INFORMATION
  Report Type: Other
  Country: TW (occurrence: TW)
  Receive Date: 20230112
  Receipt Date: 20230123
  Transmission Date: 20230418
  Serious: No
  Sender: FDA-Public Use
  Company Number: TW-CSTONE PHARMACEUTICALS (SUZHOU) CO., LTD.-2022TW02045

PATIENT
  Sex: Female

DRUGS (3)
  1. AYVAKIT [Suspect]
     Active Substance: AVAPRITINIB
     Indication: Product used for unknown indication
     Dosage: 300 MILLIGRAM, QD
     Route: 048
  2. AYVAKIT [Suspect]
     Active Substance: AVAPRITINIB
     Dosage: 100 MILLIGRAM, UNKNOWN
     Route: 065
  3. AYVAKIT [Suspect]
     Active Substance: AVAPRITINIB
     Dosage: THE DOCTOR PRESCRIBED 300MG TO TAKE 5 DAYS A WEEK AND REST FOR 2 DAYS.
     Route: 065

REACTIONS (3)
  - Oedema [Not Recovered/Not Resolved]
  - Confusional state [Not Recovered/Not Resolved]
  - Off label use [Unknown]
